FAERS Safety Report 10747806 (Version 2)
Quarter: 2015Q1

REPORT INFORMATION
  Report Type: Spontaneous
  Country: US (occurrence: US)
  Receive Date: 20150129
  Receipt Date: 20150323
  Transmission Date: 20150721
  Serious: No
  Sender: FDA-Public Use
  Company Number: US-PFIZER INC-2015032563

PATIENT
  Sex: Female

DRUGS (1)
  1. ADVIL [Suspect]
     Active Substance: IBUPROFEN
     Indication: PYREXIA
     Dosage: 1200 MG, SINGLE
     Dates: start: 201502, end: 201502

REACTIONS (3)
  - Asthenia [Recovered/Resolved]
  - Hot flush [Recovered/Resolved]
  - Extra dose administered [Recovered/Resolved]

NARRATIVE: CASE EVENT DATE: 201502
